FAERS Safety Report 8558186-3 (Version None)
Quarter: 2012Q3

REPORT INFORMATION
  Report Type: 
  Country: None (occurrence: None)
  Receive Date: 20120727
  Receipt Date: 20120727
  Transmission Date: 20120928
  Serious: Yes (Other)
  Sender: FDA-Public Use
  Company Number: None

PATIENT
  Sex: Male

DRUGS (1)
  1. LATUDA [Suspect]
     Indication: SCHIZOAFFECTIVE DISORDER
     Dosage: PO
     Route: 048

REACTIONS (4)
  - MANIA [None]
  - CONDITION AGGRAVATED [None]
  - PYREXIA [None]
  - SOMNOLENCE [None]
